FAERS Safety Report 13487768 (Version 1)
Quarter: 2017Q2

REPORT INFORMATION
  Report Type: Spontaneous
  Country: US (occurrence: US)
  Receive Date: 20170426
  Receipt Date: 20170426
  Transmission Date: 20170830
  Serious: No
  Sender: FDA-Public Use
  Company Number: US-ALKERMES INC.-ALK-2016-001017

PATIENT
  Age: 28 Year
  Sex: Female
  Weight: 48.98 kg

DRUGS (4)
  1. VIVITROL [Suspect]
     Active Substance: NALTREXONE
     Indication: DRUG USE DISORDER
     Dosage: 380 MG, QMO
     Route: 030
     Dates: start: 20160413
  2. SUBOXONE [Concomitant]
     Active Substance: BUPRENORPHINE HYDROCHLORIDE\NALOXONE HYDROCHLORIDE
     Indication: PRODUCT USED FOR UNKNOWN INDICATION
     Dosage: UNK
     Dates: start: 201604
  3. GABAPENTIN. [Concomitant]
     Active Substance: GABAPENTIN
     Indication: FIBROMYALGIA
     Dosage: 1 DF, UNK
  4. SAPHRIS [Concomitant]
     Active Substance: ASENAPINE MALEATE
     Indication: MOOD ALTERED
     Dosage: 1 DF, UNK

REACTIONS (6)
  - Impaired driving ability [Not Recovered/Not Resolved]
  - Hyperhidrosis [Unknown]
  - Hallucination [Not Recovered/Not Resolved]
  - Somnolence [Not Recovered/Not Resolved]
  - Confusional state [Unknown]
  - Irritability [Unknown]

NARRATIVE: CASE EVENT DATE: 20160413
